FAERS Safety Report 8546119-5 (Version None)
Quarter: 2012Q3

REPORT INFORMATION
  Report Type: 
  Country: None (occurrence: None)
  Receive Date: 20120727
  Receipt Date: 20111209
  Transmission Date: 20120928
  Serious: No
  Sender: FDA-Public Use
  Company Number: US-ASTRAZENECA-2011SE74739

PATIENT
  Age: 53 Year
  Sex: Female
  Weight: 81.6 kg

DRUGS (6)
  1. AMBIEN [Concomitant]
  2. SEROQUEL [Suspect]
     Route: 048
  3. RITALIN [Concomitant]
     Dosage: 10-20 MILLIGRAM
     Dates: start: 19890101
  4. SEROQUEL [Suspect]
     Indication: BIPOLAR II DISORDER
     Route: 048
  5. SEROQUEL [Suspect]
     Route: 048
  6. SEROQUEL [Suspect]
     Indication: MANIA
     Route: 048

REACTIONS (5)
  - AGITATION [None]
  - AMNESIA [None]
  - TREMOR [None]
  - WEIGHT INCREASED [None]
  - IMPAIRED WORK ABILITY [None]
